FAERS Safety Report 9190308 (Version 1)
Quarter: 2013Q1

REPORT INFORMATION
  Report Type: Spontaneous
  Country: US (occurrence: None)
  Receive Date: 20120703
  Receipt Date: 20120703
  Transmission Date: 20140127
  Serious: No
  Sender: FDA-Public Use
  Company Number: PHEH2012US005931

PATIENT
  Age: 40 Year
  Sex: Female
  Weight: 66 kg

DRUGS (9)
  1. GILENYA (FTY) CAPSULE, 0.5MG [Suspect]
     Route: 048
     Dates: start: 20120229
  2. HYDROXYCHLOROQUINE [Concomitant]
  3. LEVOTHYROXINE [Concomitant]
  4. AMLODIPINE [Concomitant]
  5. FOLIC ACID [Concomitant]
  6. SOY MENOPAUSE [Concomitant]
  7. IMITREX [Concomitant]
  8. XANAX [Concomitant]
  9. CELEXA [Concomitant]

REACTIONS (2)
  - Fatigue [None]
  - Arthralgia [None]
